FAERS Safety Report 20727733 (Version 3)
Quarter: 2024Q2

REPORT INFORMATION
  Report Type: Spontaneous
  Country: NO (occurrence: NO)
  Receive Date: 20220419
  Receipt Date: 20240515
  Transmission Date: 20240715
  Serious: Yes (Hospitalization, Other)
  Sender: FDA-Public Use
  Company Number: NO-NALPROPION PHARMACEUTICALS INC.-NO-2022CUR021336

PATIENT
  Age: 34 Year
  Sex: Male

DRUGS (15)
  1. BUPROPION HYDROCHLORIDE\NALTREXONE HYDROCHLORIDE [Suspect]
     Active Substance: BUPROPION HYDROCHLORIDE\NALTREXONE HYDROCHLORIDE
     Indication: Overweight
     Dosage: STRENGTH: 8/90 MG, UNKNOWN DOSE AND FREQUENCY
     Route: 048
     Dates: start: 20220201
  2. BUPROPION HYDROCHLORIDE\NALTREXONE HYDROCHLORIDE [Suspect]
     Active Substance: BUPROPION HYDROCHLORIDE\NALTREXONE HYDROCHLORIDE
     Dosage: STRENGTH 8/90 MG, 2 DOSAGE FORMS DAILY
     Route: 048
  3. BUPROPION HYDROCHLORIDE\NALTREXONE HYDROCHLORIDE [Suspect]
     Active Substance: BUPROPION HYDROCHLORIDE\NALTREXONE HYDROCHLORIDE
     Dosage: FULL DOSE, 2 TABLETS X 2
     Route: 048
     Dates: end: 20220407
  4. SURMONTIL [Suspect]
     Active Substance: TRIMIPRAMINE MALEATE
     Indication: Irritable bowel syndrome
     Dosage: EVENING/NIGHT (50 MG, 1 IN 1 D)
     Route: 048
     Dates: start: 202110
  5. SUMATRIPTAN SUCCINATE [Suspect]
     Active Substance: SUMATRIPTAN SUCCINATE
     Indication: Migraine
     Dosage: 1 TAB WHEN ATTACK STARTS, 1 TAB AFTER 2 HRS AS REQUIRED AND MAX 3 TABS WITHIN 24 HRS
     Route: 048
     Dates: start: 2014
  6. DYMISTA [Concomitant]
     Active Substance: AZELASTINE HYDROCHLORIDE\FLUTICASONE PROPIONATE
     Indication: Product used for unknown indication
     Dosage: 1 SPRAY IN EACH NOSTRIL X 2 AS REQUIRED
     Route: 045
  7. ZOLPIDEM TARTRATE [Concomitant]
     Active Substance: ZOLPIDEM TARTRATE
     Indication: Sleep disorder
     Dosage: 1 TABLET EVERY NIGHT
     Route: 048
  8. FEXOFENADINE [Concomitant]
     Active Substance: FEXOFENADINE HYDROCHLORIDE
     Indication: Hypersensitivity
     Dosage: EVENING/NIGHT (120 MG, 1 IN 1 D)
     Route: 048
  9. ALBUTEROL [Concomitant]
     Active Substance: ALBUTEROL
     Indication: Asthma
     Dosage: 1 INHALATION UP TO 4 TIMES DAILY AS REQUIRED. (ROUTE: INHALATION)
     Route: 055
  10. ACETAMINOPHEN\CODEINE PHOSPHATE [Concomitant]
     Active Substance: ACETAMINOPHEN\CODEINE PHOSPHATE
     Indication: Pain
     Dosage: 1 TABLET UP TO X 3 DAILY AS REQUIRED.
     Route: 048
  11. NEXIUM [Concomitant]
     Active Substance: ESOMEPRAZOLE MAGNESIUM
     Indication: Gastrooesophageal reflux disease
     Dosage: EVENING/NIGHT (80 MG, 1 IN 1 D)
     Route: 048
     Dates: start: 20220222
  12. INUXAIR [Concomitant]
     Indication: Asthma
     Dosage: 2 INHALATIONS X 2 (ROUTE: INHALATION)
     Route: 055
  13. MAGNESIUM [Concomitant]
     Active Substance: MAGNESIUM
     Indication: Product used for unknown indication
     Dosage: EVENING/NIGHT (350 MG, 1 IN 1 DAY)
     Route: 048
  14. IMODIUM [Concomitant]
     Active Substance: LOPERAMIDE HYDROCHLORIDE
     Indication: Diarrhoea
     Dosage: AS REQUIRED
     Route: 048
  15. AMLODIPINE\VALSARTAN [Concomitant]
     Active Substance: AMLODIPINE\VALSARTAN
     Indication: Hypertension
     Dosage: 1 DF IN 1 D
     Route: 048

REACTIONS (2)
  - Acute kidney injury [Recovered/Resolved]
  - Generalised tonic-clonic seizure [Recovered/Resolved]

NARRATIVE: CASE EVENT DATE: 20220405
